FAERS Safety Report 21837168 (Version 1)
Quarter: 2023Q1

REPORT INFORMATION
  Report Type: Other
  Country: US (occurrence: None)
  Receive Date: 20230109
  Receipt Date: 20230109
  Transmission Date: 20230417
  Serious: Yes (Hospitalization)
  Sender: FDA-Public Use
  Company Number: US-ROCHE-3255999

PATIENT
  Age: 40 Year
  Sex: Female
  Weight: 97.610 kg

DRUGS (12)
  1. OCREVUS [Suspect]
     Active Substance: OCRELIZUMAB
     Indication: Relapsing-remitting multiple sclerosis
     Dosage: YES; DOT: 18/JUN/2020, 21/DEC/2020, 03/DEC/2021, 07/JUN/2021, 27/DEC/2022, 21/JUN/2022
     Route: 042
     Dates: start: 2019
  2. BACLOFEN [Concomitant]
     Active Substance: BACLOFEN
     Route: 065
  3. FLONASE [Concomitant]
     Active Substance: FLUTICASONE PROPIONATE
     Route: 065
  4. AZELASTINE HYDROCHLORIDE [Concomitant]
     Active Substance: AZELASTINE HYDROCHLORIDE
     Route: 065
  5. VITAMIN D3 [Concomitant]
     Active Substance: CHOLECALCIFEROL
     Route: 065
  6. SUMATRIPTAN [Concomitant]
     Active Substance: SUMATRIPTAN
     Route: 065
  7. TEMAZEPAM [Concomitant]
     Active Substance: TEMAZEPAM
     Route: 065
  8. GRALISE [Concomitant]
     Active Substance: GABAPENTIN
     Route: 065
  9. CITALOPRAM [Concomitant]
     Active Substance: CITALOPRAM HYDROBROMIDE
     Route: 065
  10. VENTOLIN [Concomitant]
     Active Substance: ALBUTEROL SULFATE
     Route: 065
  11. XYZAL [Concomitant]
     Active Substance: LEVOCETIRIZINE DIHYDROCHLORIDE
     Route: 065
  12. BREO ELLIPTA [Concomitant]
     Active Substance: FLUTICASONE FUROATE\VILANTEROL TRIFENATATE
     Route: 065

REACTIONS (13)
  - Urinary tract infection [Recovered/Resolved]
  - Pyrexia [Recovered/Resolved]
  - Blood phosphorus decreased [Recovered/Resolved]
  - Blood magnesium decreased [Recovered/Resolved]
  - Blood potassium decreased [Recovered/Resolved]
  - White blood cell count decreased [Recovering/Resolving]
  - Pharyngitis streptococcal [Recovered/Resolved]
  - Plantar fasciitis [Not Recovered/Not Resolved]
  - Intervertebral disc protrusion [Not Recovered/Not Resolved]
  - Vitamin D decreased [Unknown]
  - Asthma [Not Recovered/Not Resolved]
  - Mite allergy [Not Recovered/Not Resolved]
  - Trigger finger [Recovered/Resolved]

NARRATIVE: CASE EVENT DATE: 20210101
